FAERS Safety Report 7994034-8 (Version None)
Quarter: 2011Q4

REPORT INFORMATION
  Report Type: 
  Country: None (occurrence: None)
  Receive Date: 20111123
  Receipt Date: 20111025
  Transmission Date: 20120403
  Serious: No
  Sender: FDA-Public Use
  Company Number: 338126

PATIENT
  Age: 61 Year
  Sex: Female

DRUGS (1)
  1. VICTOZA [Suspect]
     Indication: TYPE 2 DIABETES MELLITUS
     Dosage: 0.6 MG, BID, SUBCUTANEOUS
     Route: 058
     Dates: start: 20110913

REACTIONS (3)
  - WEIGHT DECREASED [None]
  - DECREASED APPETITE [None]
  - NAUSEA [None]
